FAERS Safety Report 14367703 (Version 1)
Quarter: 2018Q1

REPORT INFORMATION
  Report Type: Spontaneous
  Country: US (occurrence: US)
  Receive Date: 20180109
  Receipt Date: 20180109
  Transmission Date: 20180509
  Serious: No
  Sender: FDA-Public Use
  Company Number: US-PERRIGO-17US001655

PATIENT
  Sex: Male

DRUGS (3)
  1. STIE-CORT [Suspect]
     Active Substance: HYDROCORTISONE
     Indication: ROSACEA
     Dosage: 1 APPLICATION, 3 TO 4 TIMES DAILY
     Route: 061
     Dates: start: 20170127, end: 201702
  2. STIE-CORT [Suspect]
     Active Substance: HYDROCORTISONE
     Dosage: 1 APPLICATION, 4 TO 6 TIMES DAILY
     Route: 061
     Dates: start: 201702, end: 201702
  3. AMPICILLIN [Concomitant]
     Active Substance: AMPICILLIN
     Indication: ROSACEA
     Dosage: UNK

REACTIONS (2)
  - Drug ineffective [Unknown]
  - Inappropriate schedule of drug administration [Recovered/Resolved]

NARRATIVE: CASE EVENT DATE: 20170127
